FAERS Safety Report 25669972 (Version 1)
Quarter: 2025Q3

REPORT INFORMATION
  Report Type: Spontaneous
  Country: US (occurrence: US)
  Receive Date: 20250812
  Receipt Date: 20250812
  Transmission Date: 20251020
  Serious: No
  Sender: GALPHARM INTERNATIONAL
  Company Number: US-PERRIGO-25US003371

PATIENT

DRUGS (1)
  1. NICOTINE POLACRILEX [Suspect]
     Active Substance: NICOTINE
     Indication: Smoking cessation therapy
     Route: 002
     Dates: start: 20250308

REACTIONS (1)
  - Abnormal dreams [Unknown]

NARRATIVE: CASE EVENT DATE: 20250308
